FAERS Safety Report 7055397-3 (Version None)
Quarter: 2010Q4

REPORT INFORMATION
  Report Type: 
  Country: None (occurrence: None)
  Receive Date: 20101021
  Receipt Date: 20101011
  Transmission Date: 20110411
  Serious: Yes (Other)
  Sender: FDA-Public Use
  Company Number: PHHY2010FR68092

PATIENT
  Sex: Male

DRUGS (5)
  1. LESCOL [Suspect]
     Indication: HYPERCHOLESTEROLAEMIA
     Dosage: UNK
  2. TAVANIC [Suspect]
     Indication: URINARY CALCULUS REMOVAL
     Dosage: 500 MG DAILY
     Route: 048
     Dates: start: 20100821, end: 20100823
  3. LADOZ [Concomitant]
     Indication: HYPERTENSION
     Dosage: UNK
     Route: 048
  4. OMEXEL [Concomitant]
     Indication: BENIGN PROSTATIC HYPERPLASIA
     Dosage: UNK
     Route: 048
  5. STRUCTUM [Concomitant]
     Indication: PAIN
     Dosage: UNK
     Route: 048

REACTIONS (3)
  - GAIT DISTURBANCE [None]
  - PAIN IN EXTREMITY [None]
  - URINARY CALCULUS REMOVAL [None]
